FAERS Safety Report 5756496-6 (Version None)
Quarter: 2008Q2

REPORT INFORMATION
  Report Type: 
  Country: None (occurrence: None)
  Receive Date: 20080603
  Receipt Date: 20080529
  Transmission Date: 20081010
  Serious: Yes (Death, Hospitalization)
  Sender: FDA-Public Use
  Company Number: BR-JNJFOC-20080600070

PATIENT
  Sex: Female
  Weight: 61 kg

DRUGS (7)
  1. CAELYX [Suspect]
     Route: 042
  2. CAELYX [Suspect]
     Indication: OVARIAN CANCER
     Route: 042
  3. TELCYTA [Suspect]
     Indication: OVARIAN CANCER
     Route: 042
  4. LEXOTAN [Concomitant]
  5. CODEINE SUL TAB [Concomitant]
  6. OMEPRAZOLE [Concomitant]
  7. PLASIL [Concomitant]

REACTIONS (2)
  - FEBRILE NEUTROPENIA [None]
  - SEPTIC SHOCK [None]
